FAERS Safety Report 6101225-X (Version None)
Quarter: 2009Q1

REPORT INFORMATION
  Report Type: 
  Country: None (occurrence: None)
  Receive Date: 20090227
  Receipt Date: 20080512
  Transmission Date: 20090719
  Serious: Yes (Other)
  Sender: FDA-Public Use
  Company Number: 2008S1008201

PATIENT
  Sex: Male

DRUGS (7)
  1. AMNESTEEM [Suspect]
     Dosage: ORAL
     Route: 048
     Dates: start: 20030201, end: 20030301
  2. ACCUTANE [Suspect]
     Dosage: ORAL ; ORAL ; ORAL ; ORAL ; ORAL
     Route: 048
     Dates: start: 19981001, end: 19981201
  3. ACCUTANE [Suspect]
     Dosage: ORAL ; ORAL ; ORAL ; ORAL ; ORAL
     Route: 048
     Dates: start: 19990101, end: 19990201
  4. ACCUTANE [Suspect]
     Dosage: ORAL ; ORAL ; ORAL ; ORAL ; ORAL
     Route: 048
     Dates: start: 19990501, end: 19990601
  5. ACCUTANE [Suspect]
     Dosage: ORAL ; ORAL ; ORAL ; ORAL ; ORAL
     Route: 048
     Dates: start: 20000201, end: 20000501
  6. ACCUTANE [Suspect]
     Dosage: ORAL ; ORAL ; ORAL ; ORAL ; ORAL
     Route: 048
     Dates: start: 20010701, end: 20011001
  7. CLARAVIS [Suspect]
     Dosage: ORAL
     Route: 048
     Dates: start: 20030701, end: 20030801

REACTIONS (1)
  - INFLAMMATORY BOWEL DISEASE [None]
